FAERS Safety Report 8881608 (Version 4)
Quarter: 2012Q4

REPORT INFORMATION
  Report Type: 
  Country: US (occurrence: US)
  Receive Date: 20121102
  Receipt Date: 20121218
  Transmission Date: 20130627
  Serious: Yes (Hospitalization)
  Sender: FDA-Public Use
  Company Number: US-JNJFOC-20121014233

PATIENT
  Age: 50 Year
  Sex: Female

DRUGS (1)
  1. EVICEL [Suspect]
     Indication: HAEMOSTASIS
     Dosage: 5 cc once
     Route: 061
     Dates: start: 20121015, end: 20121015

REACTIONS (2)
  - Subcutaneous emphysema [Unknown]
  - Pleural effusion [Unknown]
